FAERS Safety Report 11632933 (Version 1)
Quarter: 2015Q4

REPORT INFORMATION
  Report Type: Spontaneous
  Country: DE (occurrence: DE)
  Receive Date: 20151015
  Receipt Date: 20151015
  Transmission Date: 20160304
  Serious: Yes (Hospitalization)
  Sender: FDA-Public Use
  Company Number: PHHY2015DE124797

PATIENT
  Sex: Female

DRUGS (1)
  1. DESFERAL INF. [Suspect]
     Active Substance: DEFEROXAMINE MESYLATE
     Dosage: 0.5 G, UNK
     Route: 065
     Dates: start: 20150731

REACTIONS (2)
  - Pain [Unknown]
  - Chromaturia [Recovered/Resolved]

NARRATIVE: CASE EVENT DATE: 201508
